FAERS Safety Report 5913834-9 (Version None)
Quarter: 2008Q4

REPORT INFORMATION
  Report Type: 
  Country: None (occurrence: None)
  Receive Date: 20081009
  Receipt Date: 20081008
  Transmission Date: 20090506
  Serious: Yes (Other)
  Sender: FDA-Public Use
  Company Number: A0745506A

PATIENT
  Age: 39 Year
  Sex: Female

DRUGS (1)
  1. BUPROPION HCL [Suspect]
     Indication: PAIN
     Dosage: 150MG PER DAY
     Route: 048
     Dates: start: 20080408, end: 20080821

REACTIONS (7)
  - DYSPEPSIA [None]
  - HAEMATEMESIS [None]
  - INFLUENZA LIKE ILLNESS [None]
  - MALAISE [None]
  - OFF LABEL USE [None]
  - PAROSMIA [None]
  - PRODUCT QUALITY ISSUE [None]
